FAERS Safety Report 4706215-7 (Version None)
Quarter: 2005Q2

REPORT INFORMATION
  Report Type: 
  Country: None (occurrence: None)
  Receive Date: 20050629
  Receipt Date: 20050620
  Transmission Date: 20051028
  Serious: Yes (Other)
  Sender: FDA-Public Use
  Company Number: HQWYE503004MAY05

PATIENT
  Age: 26 Year
  Sex: Male
  Weight: 87.3 kg

DRUGS (3)
  1. RAPAMUNE [Suspect]
     Indication: PROPHYLAXIS AGAINST TRANSPLANT REJECTION
     Dosage: 2 MG 1X PER 1 DAY, ORAL
     Route: 048
     Dates: start: 20041218, end: 20050428
  2. CELLCEPPT (MYCOPHENOLATE MOFETIL0 [Concomitant]
  3. CORTICOSTEROID NOS (CORTICOSTEROID NOS) [Concomitant]

REACTIONS (2)
  - DRUG INEFFECTIVE [None]
  - KIDNEY TRANSPLANT REJECTION [None]
